FAERS Safety Report 23146228 (Version 1)
Quarter: 2023Q4

REPORT INFORMATION
  Report Type: Spontaneous
  Country: FR (occurrence: FR)
  Receive Date: 20231104
  Receipt Date: 20231104
  Transmission Date: 20240110
  Serious: Yes (Other)
  Sender: FDA-Public Use
  Company Number: FR-AFSSAPS-BX20201789

PATIENT
  Age: 19 Year
  Sex: Male

DRUGS (9)
  1. OLANZAPINE [Suspect]
     Active Substance: OLANZAPINE
     Indication: Mania
     Dosage: UNK
     Route: 048
     Dates: start: 20201014, end: 20201020
  2. CLONAZEPAM [Suspect]
     Active Substance: CLONAZEPAM
     Indication: Agitation
     Dosage: UNK
     Route: 048
     Dates: start: 20201020, end: 20201028
  3. VALPROATE SODIUM [Suspect]
     Active Substance: VALPROATE SODIUM
     Indication: Mania
     Dosage: UNK
     Route: 048
     Dates: start: 20201020, end: 20201201
  4. HALDOL [Suspect]
     Active Substance: HALOPERIDOL
     Indication: Mania
     Dosage: 2 MILLIGRAM PER MILLILETER (2 MG/ML)
     Route: 048
     Dates: start: 20201014
  5. LOXAPINE [Suspect]
     Active Substance: LOXAPINE
     Indication: Agitation
     Dosage: 1500 MILLIGRAM, ONCE A DAY
     Route: 048
     Dates: start: 20201013
  6. LEVOMEPROMAZINE [Suspect]
     Active Substance: LEVOMEPROMAZINE
     Indication: Agitation
     Dosage: UNK (MOST RECENT DOSE PRIOR TO AE 04/NOV/20204%, SOLUTION BUVABLE)
     Route: 048
     Dates: start: 20201019
  7. RISPERDAL [Suspect]
     Active Substance: RISPERIDONE
     Indication: Mania
     Dosage: UNK
     Route: 048
     Dates: start: 20201020, end: 20201104
  8. CYAMEMAZINE [Suspect]
     Active Substance: CYAMEMAZINE
     Indication: Mania
     Dosage: 40 MILLIGRAM PER MILLILETER (40 MG/MLMOST RECENT DOSE PRIOR TO AE 16/OCT/2020)
     Route: 048
     Dates: start: 20201014, end: 20201016
  9. VALIUM [Suspect]
     Active Substance: DIAZEPAM
     Indication: Agitation
     Dosage: UNK
     Route: 048
     Dates: start: 20201013, end: 20201130

REACTIONS (3)
  - Neutropenia [Not Recovered/Not Resolved]
  - Lymphopenia [Not Recovered/Not Resolved]
  - Thrombocytopenia [Not Recovered/Not Resolved]

NARRATIVE: CASE EVENT DATE: 20201020
